FAERS Safety Report 9566288 (Version 1)
Quarter: 2013Q3

REPORT INFORMATION
  Report Type: Not Available
  Country: GB (occurrence: GB)
  Receive Date: 20130930
  Receipt Date: 20130930
  Transmission Date: 20140515
  Serious: Yes (Death)
  Sender: FDA-Public Use
  Company Number: GB-PURDUE-GBR-2013-0015848

PATIENT
  Sex: Male

DRUGS (5)
  1. MORPHINE SULFATE [Suspect]
     Indication: PRODUCT USED FOR UNKNOWN INDICATION
     Dosage: 30 MG, BID
     Route: 065
  2. AMITRIPTYLINE [Interacting]
     Indication: PRODUCT USED FOR UNKNOWN INDICATION
     Dosage: 50 MG, NOCTE
     Route: 048
  3. OLANZAPINE [Interacting]
     Indication: PRODUCT USED FOR UNKNOWN INDICATION
     Route: 065
  4. DIAZEPAM [Interacting]
     Indication: PRODUCT USED FOR UNKNOWN INDICATION
     Dosage: 5 MG, UNK
     Route: 065
  5. VENLAFAXINE [Concomitant]
     Indication: PRODUCT USED FOR UNKNOWN INDICATION

REACTIONS (3)
  - Drug interaction [Fatal]
  - Toxicity to various agents [Fatal]
  - Drug screen positive [Fatal]
